FAERS Safety Report 8195701-6 (Version None)
Quarter: 2012Q1

REPORT INFORMATION
  Report Type: 
  Country: None (occurrence: None)
  Receive Date: 20120308
  Receipt Date: 20120228
  Transmission Date: 20120608
  Serious: Yes (Hospitalization)
  Sender: FDA-Public Use
  Company Number: JP-AMGEN-JPNCT2011025031

PATIENT
  Age: 68 Year
  Sex: Female
  Weight: 45 kg

DRUGS (11)
  1. TRAMADOL HYDROCHLORIDE [Concomitant]
     Indication: PAIN
     Route: 048
     Dates: start: 20110314
  2. PYRAZOLONES [Concomitant]
     Indication: HEADACHE
     Dosage: 1 DF, TID
     Route: 048
  3. MAGNESIUM OXIDE [Concomitant]
     Indication: CONSTIPATION
     Dosage: 0.67 G, TID
     Route: 048
     Dates: start: 20100928
  4. PYDOXAL [Concomitant]
     Indication: NEUROPATHY PERIPHERAL
     Dosage: 1 DF, TID
     Route: 048
     Dates: start: 20100928
  5. MIYA-BM [Concomitant]
     Indication: DIARRHOEA
     Dosage: 1 DF, TID
     Route: 048
     Dates: start: 20100928
  6. PANITUMUMAB [Suspect]
     Indication: COLORECTAL CANCER METASTATIC
     Dosage: 250 MG, Q2WK
     Route: 041
     Dates: start: 20110309, end: 20110419
  7. LENDORMIN [Concomitant]
     Indication: INSOMNIA
     Dosage: 1 DF, QD
     Route: 048
     Dates: start: 20100928
  8. ALLOID G [Concomitant]
     Indication: ABDOMINAL PAIN UPPER
     Dosage: 15 ML, TID
     Route: 048
     Dates: start: 20100928
  9. CINAL [Concomitant]
     Indication: ASTHENIA
     Dosage: 1 DF, BID
     Route: 048
  10. LOXONIN [Suspect]
     Indication: HEADACHE
     Dosage: 1 DF, UNK
     Route: 048
     Dates: start: 20110414
  11. METHYCOBAL [Concomitant]
     Indication: NEUROPATHY PERIPHERAL
     Dosage: 1 DF, TID
     Route: 048
     Dates: start: 20100928

REACTIONS (1)
  - INTERSTITIAL LUNG DISEASE [None]
